FAERS Safety Report 21313178 (Version 1)
Quarter: 2022Q3

REPORT INFORMATION
  Report Type: Spontaneous
  Country: US (occurrence: US)
  Receive Date: 20220909
  Receipt Date: 20220909
  Transmission Date: 20221027
  Serious: Yes (Other)
  Sender: FDA-Public Use
  Company Number: US-BAYER-2022A123039

PATIENT
  Age: 56 Year
  Sex: Male

DRUGS (1)
  1. CALCIUM CARBONATE [Suspect]
     Active Substance: CALCIUM CARBONATE

REACTIONS (6)
  - Acute kidney injury [None]
  - Sarcoidosis [None]
  - Hypercalcaemia [None]
  - Polydipsia [None]
  - Fatigue [None]
  - Extra dose administered [None]
